FAERS Safety Report 7853625-5 (Version None)
Quarter: 2011Q4

REPORT INFORMATION
  Report Type: 
  Country: None (occurrence: None)
  Receive Date: 20111026
  Receipt Date: 20111020
  Transmission Date: 20120403
  Serious: Yes (Hospitalization, Other)
  Sender: FDA-Public Use
  Company Number: FR-PFIZER INC-2011252712

PATIENT
  Age: 72 Year
  Sex: Male

DRUGS (16)
  1. EFFEXOR XR [Suspect]
     Dosage: UNK
     Route: 048
  2. TRIMEPRAZINE TARTRATE [Suspect]
     Dosage: 80 DROPS DAILY
     Route: 048
  3. ARTANE [Concomitant]
     Dosage: 5 MG DAILY
  4. ONGLYZA [Concomitant]
     Dosage: 1 DF DAILY
     Dates: start: 20010301
  5. ATORVASTATIN CALCIUM [Concomitant]
     Dosage: 20 MG DAILY
  6. EFFEXOR [Suspect]
     Dosage: UNK
     Route: 048
  7. TERCIAN [Suspect]
     Dosage: 25 MG DAILY IN THE MORNING, 100 MG DAILY IN THE EVENING
     Route: 048
  8. DIHYDROERGOTAMINE MESYLATE [Concomitant]
     Dosage: 2 DF DAILY
  9. LANTUS [Concomitant]
     Dosage: UNK
  10. ALPRAZOLAM [Concomitant]
     Dosage: 0.5MG DAILY
  11. IMOVANE [Concomitant]
     Dosage: 1 DF DAILY
  12. ASPIRIN [Concomitant]
     Dosage: 75 MG DAILY
  13. TANAKAN [Concomitant]
     Dosage: 3 DF DAILY
  14. AMITRIPTYLINE HCL [Suspect]
     Dosage: 100 MG DAILY
     Route: 048
  15. METFORMIN HCL [Concomitant]
     Dosage: 1700MG DAILY
  16. SULFARLEM [Concomitant]
     Dosage: 4 DF DAILY

REACTIONS (4)
  - RIB FRACTURE [None]
  - FALL [None]
  - ORTHOSTATIC HYPOTENSION [None]
  - PLEURAL EFFUSION [None]
